FAERS Safety Report 19056340 (Version 2)
Quarter: 2021Q1

REPORT INFORMATION
  Report Type: Report from Study
  Country: US (occurrence: US)
  Receive Date: 20210324
  Receipt Date: 20210331
  Transmission Date: 20210420
  Serious: Yes (Hospitalization, Other)
  Sender: FDA-Public Use
  Company Number: US-PFIZER INC-2021292776

PATIENT
  Age: 47 Year
  Sex: Female
  Weight: 98.88 kg

DRUGS (11)
  1. ZOLPIDEM TARTRATE. [Concomitant]
     Active Substance: ZOLPIDEM TARTRATE
     Dosage: 5 MILLIGRAM
     Route: 048
  2. ENBREL [Suspect]
     Active Substance: ETANERCEPT
     Indication: RHEUMATOID ARTHRITIS
     Dosage: 50 MILLIGRAM, QWK
     Route: 058
     Dates: start: 20200405
  3. PLAQUENIL [Concomitant]
     Active Substance: HYDROXYCHLOROQUINE SULFATE
     Indication: RHEUMATOID ARTHRITIS
     Dosage: 200 MILLIGRAM, BID, 01 TABLET WITH FOOD OR MILK
     Route: 048
  4. METHOTREXATE. [Concomitant]
     Active Substance: METHOTREXATE
     Dosage: UNK
  5. IRON [Concomitant]
     Active Substance: IRON
     Dosage: 240 MILLIGRAM, QD, 1 TABLET WITH WATER OR JUICE BETWEEN MEALS
     Route: 048
  6. LINZESS [Concomitant]
     Active Substance: LINACLOTIDE
     Dosage: 72 MICROGRAM, QD
     Route: 048
  7. TIZANIDINE HCL [Concomitant]
     Active Substance: TIZANIDINE HYDROCHLORIDE
     Dosage: 4 MILLIGRAM, 1 TABLET AS NEEDED, 2 AT BEDTIME
     Route: 048
  8. PREDNISONE. [Concomitant]
     Active Substance: PREDNISONE
     Dosage: 5 MILLIGRAM, DAILY 30 DAYS
     Route: 048
  9. INFLUENZA VACCINE [Concomitant]
     Active Substance: INFLUENZA VIRUS VACCINE
     Dosage: UNK
     Dates: start: 202011
  10. BACLOFEN. [Concomitant]
     Active Substance: BACLOFEN
     Dosage: 10 MILLIGRAM, BID, 1 TABLET WITH FOOD OR MILK
     Route: 048
  11. VITAMIN D3 [Concomitant]
     Active Substance: CHOLECALCIFEROL
     Dosage: 25 MICROGRAM, QD
     Route: 048

REACTIONS (16)
  - Hepatitis C [Unknown]
  - Osteoarthritis [Unknown]
  - Nicotine dependence [Unknown]
  - Road traffic accident [Unknown]
  - Deep vein thrombosis [Unknown]
  - Tongue disorder [Unknown]
  - Tobacco abuse [Unknown]
  - Rheumatoid arthritis [Unknown]
  - Pulmonary embolism [Unknown]
  - Device difficult to use [Unknown]
  - Exposure via skin contact [Unknown]
  - Anxiety [Unknown]
  - Nasal septum deviation [Unknown]
  - Device issue [Unknown]
  - Injury associated with device [Unknown]
  - Accidental exposure to product [Unknown]

NARRATIVE: CASE EVENT DATE: 20210305
